FAERS Safety Report 4879188-4 (Version None)
Quarter: 2006Q1

REPORT INFORMATION
  Report Type: 
  Country: None (occurrence: None)
  Receive Date: 20060112
  Receipt Date: 20060104
  Transmission Date: 20060701
  Serious: Yes (Other)
  Sender: FDA-Public Use
  Company Number: GB-BRISTOL-MYERS SQUIBB COMPANY-13237417

PATIENT
  Age: 69 Year
  Sex: Female

DRUGS (6)
  1. ABILIFY [Suspect]
     Dosage: DOSAGE: REDUCED TO 10 MG DAILY, THEN WITHDRAWN
     Route: 048
     Dates: start: 20050112, end: 20050309
  2. CIPRALEX [Suspect]
     Route: 048
  3. TEGRETOL [Concomitant]
     Route: 048
     Dates: start: 20041029
  4. THYROXINE [Concomitant]
     Route: 048
     Dates: start: 20020311
  5. THYROXINE [Concomitant]
  6. NUELIN [Concomitant]
     Route: 048
     Dates: start: 19980101

REACTIONS (3)
  - BLOOD GLUCOSE INCREASED [None]
  - HEPATIC STEATOSIS [None]
  - LIVER FUNCTION TEST ABNORMAL [None]
